FAERS Safety Report 16535085 (Version 1)
Quarter: 2019Q3

REPORT INFORMATION
  Report Type: Spontaneous
  Country: US (occurrence: US)
  Receive Date: 20190705
  Receipt Date: 20190705
  Transmission Date: 20191004
  Serious: No
  Sender: FDA-Public Use
  Company Number: US-JUBILANT CADISTA PHARMACEUTICALS-2018JUB00264

PATIENT
  Age: 63 Year
  Sex: Female
  Weight: 111.11 kg

DRUGS (8)
  1. OMEPRAZOLE OTC [Concomitant]
     Active Substance: OMEPRAZOLE
  2. IRON [Concomitant]
     Active Substance: IRON
     Dosage: 65 MG, UNK
  3. VENLAFAXINE [Concomitant]
     Active Substance: VENLAFAXINE HYDROCHLORIDE
  4. UNSPECIFIED VITAMIN [Concomitant]
     Active Substance: VITAMINS
  5. METOPROLOL. [Concomitant]
     Active Substance: METOPROLOL
     Dosage: UNK
     Dates: start: 20180612
  6. ALLEGRA OTC [Concomitant]
  7. MECLIZINE HYDROCHLORIDE. [Suspect]
     Active Substance: MECLIZINE HYDROCHLORIDE
     Indication: VERTIGO
     Dosage: 25 MG, 3X/DAY
     Route: 048
     Dates: start: 20180622
  8. TRIAMTERENE. [Concomitant]
     Active Substance: TRIAMTERENE

REACTIONS (2)
  - Somnolence [Not Recovered/Not Resolved]
  - Fatigue [Not Recovered/Not Resolved]

NARRATIVE: CASE EVENT DATE: 201806
